FAERS Safety Report 4899881-7 (Version None)
Quarter: 2006Q1

REPORT INFORMATION
  Report Type: 
  Country: None (occurrence: None)
  Receive Date: 20060118
  Receipt Date: 20051013
  Transmission Date: 20060701
  Serious: No
  Sender: FDA-Public Use
  Company Number: 2005002007

PATIENT
  Age: 52 Year
  Sex: Male
  Weight: 97.5234 kg

DRUGS (1)
  1. TARCEVA [Suspect]
     Indication: TESTIS CANCER
     Dosage: 150 MG (QD), ORAL
     Route: 048
     Dates: start: 20050801

REACTIONS (4)
  - DIARRHOEA [None]
  - ERECTILE DYSFUNCTION [None]
  - FATIGUE [None]
  - RASH [None]
